FAERS Safety Report 13033731 (Version 2)
Quarter: 2016Q4

REPORT INFORMATION
  Report Type: Spontaneous
  Country: IE (occurrence: IE)
  Receive Date: 20161216
  Receipt Date: 20161220
  Transmission Date: 20170207
  Serious: Yes (Hospitalization)
  Sender: FDA-Public Use
  Company Number: IE-JNJFOC-20161206508

PATIENT
  Sex: Female

DRUGS (5)
  1. NUROFEN [Concomitant]
     Active Substance: IBUPROFEN
     Indication: HEADACHE
     Dosage: ONE WEEK
     Route: 065
  2. NUROFEN [Concomitant]
     Active Substance: IBUPROFEN
     Indication: ABDOMINAL PAIN
     Dosage: ONE WEEK
     Route: 065
  3. CALPOL [Suspect]
     Active Substance: ACETAMINOPHEN
     Indication: ABDOMINAL PAIN
     Dosage: TWO TABLETS USED FOR A WEEK
     Route: 048
  4. CALPOL [Suspect]
     Active Substance: ACETAMINOPHEN
     Indication: HEADACHE
     Dosage: TWO TABLETS USED FOR A WEEK
     Route: 048
  5. AUGMENTIN [Concomitant]
     Active Substance: AMOXICILLIN\CLAVULANATE POTASSIUM
     Indication: PRODUCT USED FOR UNKNOWN INDICATION
     Dosage: 4/5 DAYS BEFORE USING PARACETAMOL - USED FOR ONE WEEK
     Route: 065

REACTIONS (3)
  - Hypersensitivity [Unknown]
  - Rash generalised [Unknown]
  - Lip swelling [Unknown]
